FAERS Safety Report 8558413-2 (Version None)
Quarter: 2012Q3

REPORT INFORMATION
  Report Type: 
  Country: None (occurrence: None)
  Receive Date: 20120801
  Receipt Date: 20110503
  Transmission Date: 20120928
  Serious: No
  Sender: FDA-Public Use
  Company Number: US-ASTRAZENECA-2011SE17118

PATIENT
  Age: 57 Year
  Sex: Female

DRUGS (3)
  1. PRILOSEC [Suspect]
     Route: 048
     Dates: start: 20100101
  2. PROTONIX [Suspect]
     Route: 065
     Dates: start: 20100101
  3. NEXIUM [Suspect]
     Indication: GASTROOESOPHAGEAL REFLUX DISEASE
     Route: 048
     Dates: start: 20070101, end: 20100101

REACTIONS (5)
  - DRUG INEFFECTIVE [None]
  - DRUG DOSE OMISSION [None]
  - HIATUS HERNIA [None]
  - FEELING ABNORMAL [None]
  - PAIN [None]
